FAERS Safety Report 21440130 (Version 8)
Quarter: 2024Q2

REPORT INFORMATION
  Report Type: Spontaneous
  Country: US (occurrence: US)
  Receive Date: 20221011
  Receipt Date: 20240503
  Transmission Date: 20240716
  Serious: No
  Sender: FDA-Public Use
  Company Number: US-PFIZER INC-PV202200078794

PATIENT
  Age: 73 Year
  Sex: Female

DRUGS (1)
  1. CIBINQO [Suspect]
     Active Substance: ABROCITINIB
     Dosage: 100 MG
     Route: 048
     Dates: end: 202401

REACTIONS (8)
  - Rash [Unknown]
  - Condition aggravated [Unknown]
  - Sleep disorder [Unknown]
  - Erythema [Unknown]
  - Pruritus [Unknown]
  - Insomnia [Unknown]
  - Blister [Unknown]
  - Dermatitis atopic [Unknown]
